FAERS Safety Report 12897107 (Version 1)
Quarter: 2016Q4

REPORT INFORMATION
  Report Type: Spontaneous
  Country: US (occurrence: US)
  Receive Date: 20161031
  Receipt Date: 20161031
  Transmission Date: 20170207
  Serious: Yes (Disabling, Other)
  Sender: FDA-Public Use
  Company Number: None

PATIENT
  Age: 67 Year
  Sex: Female
  Weight: 79.38 kg

DRUGS (13)
  1. VENTOLIN [Concomitant]
     Active Substance: ALBUTEROL SULFATE
  2. VITAMIN D [Concomitant]
     Active Substance: CHOLECALCIFEROL
  3. TRAVATAN [Concomitant]
     Active Substance: TRAVOPROST
  4. AMOX-CLAV [Concomitant]
     Active Substance: AMOXICILLIN\CLAVULANATE POTASSIUM
  5. METOPROLOL. [Concomitant]
     Active Substance: METOPROLOL
  6. BIOTIN [Concomitant]
     Active Substance: BIOTIN
  7. ZINC [Concomitant]
     Active Substance: ZINC\ZINC CHLORIDE
  8. FLUTICASONE PROPTIONATE / NASAL SPRAY HI-TECH PHARMACAL CO INC [Suspect]
     Active Substance: FLUTICASONE PROPIONATE
     Indication: HYPERSENSITIVITY
     Dosage: ?          QUANTITY:I AT SFLIQMS;?
     Route: 045
     Dates: start: 20160729, end: 20161003
  9. OMEGA 3 FISH OIL [Concomitant]
     Active Substance: FISH OIL\OMEGA-3 FATTY ACIDS
  10. PROBIOTICS [Concomitant]
     Active Substance: PROBIOTICS NOS
  11. FLUTICASONE PROPTIONATE / NASAL SPRAY HI-TECH PHARMACAL CO INC [Suspect]
     Active Substance: FLUTICASONE PROPIONATE
     Indication: VERTIGO
     Dosage: ?          QUANTITY:I AT SFLIQMS;?
     Route: 045
     Dates: start: 20160729, end: 20161003
  12. ZANTAC [Concomitant]
     Active Substance: RANITIDINE HYDROCHLORIDE
  13. ANUCORT-HC [Concomitant]
     Active Substance: HYDROCORTISONE ACETATE

REACTIONS (8)
  - Sinus headache [None]
  - Ear pain [None]
  - Urticaria [None]
  - Fatigue [None]
  - Upper-airway cough syndrome [None]
  - Dyspnoea [None]
  - Wheezing [None]
  - Cough [None]

NARRATIVE: CASE EVENT DATE: 20161003
